FAERS Safety Report 11679951 (Version 2)
Quarter: 2015Q4

REPORT INFORMATION
  Report Type: Spontaneous
  Country: US (occurrence: US)
  Receive Date: 20151027
  Receipt Date: 20151104
  Transmission Date: 20160304
  Serious: No
  Sender: FDA-Public Use
  Company Number: US-ELI_LILLY_AND_COMPANY-US201011001432

PATIENT
  Age: 55 Year
  Sex: Female

DRUGS (1)
  1. FORTEO [Suspect]
     Active Substance: TERIPARATIDE
     Indication: OSTEOPOROSIS

REACTIONS (7)
  - Pain in extremity [Unknown]
  - Injection site swelling [Unknown]
  - Pain [Recovered/Resolved]
  - Injection site erythema [Unknown]
  - Flatulence [Unknown]
  - Back pain [Recovered/Resolved]
  - Musculoskeletal discomfort [Unknown]
